FAERS Safety Report 23408246 (Version 1)
Quarter: 2024Q1

REPORT INFORMATION
  Report Type: Spontaneous
  Country: US (occurrence: US)
  Receive Date: 20240117
  Receipt Date: 20240117
  Transmission Date: 20240409
  Serious: No
  Sender: FDA-Public Use
  Company Number: US-002147023-NVSC2023US138536

PATIENT
  Age: 45 Year
  Sex: Female

DRUGS (2)
  1. METFORMIN [Suspect]
     Active Substance: METFORMIN HYDROCHLORIDE
     Indication: PIK3CA related overgrowth spectrum
     Dosage: UNK
     Route: 065
  2. VIJOICE [Suspect]
     Active Substance: ALPELISIB
     Indication: PIK3CA related overgrowth spectrum
     Dosage: 250 MG, QD
     Route: 048
     Dates: start: 20230526

REACTIONS (6)
  - Pain [Unknown]
  - Gastrointestinal disorder [Unknown]
  - Alopecia [Unknown]
  - Blood glucose increased [Unknown]
  - Packaging design issue [Unknown]
  - Migraine [Unknown]

NARRATIVE: CASE EVENT DATE: 20230526
